FAERS Safety Report 5156915-2 (Version None)
Quarter: 2006Q4

REPORT INFORMATION
  Report Type: 
  Country: None (occurrence: None)
  Receive Date: 20060918
  Receipt Date: 20060112
  Transmission Date: 20070319
  Serious: Yes (Other)
  Sender: FDA-Public Use
  Company Number: US-JNJFOC-20051203424

PATIENT
  Age: 38 Year
  Sex: Female

DRUGS (1)
  1. TOPAMAX [Suspect]
     Indication: MIGRAINE PROPHYLAXIS
     Dosage: ORAL
     Route: 048
     Dates: start: 20040101, end: 20051201

REACTIONS (4)
  - HEADACHE [None]
  - MENTAL STATUS CHANGES [None]
  - PSYCHOTIC DISORDER [None]
  - SCREAMING [None]
